FAERS Safety Report 21832885 (Version 2)
Quarter: 2023Q1

REPORT INFORMATION
  Report Type: Report from Study
  Country: BE (occurrence: BE)
  Receive Date: 20230106
  Receipt Date: 20230206
  Transmission Date: 20230418
  Serious: Yes (Hospitalization, Other)
  Sender: FDA-Public Use
  Company Number: BE-ORGANON-O2212BEL001850

PATIENT
  Sex: Male
  Weight: 59.5 kg

DRUGS (49)
  1. HYDROCORTISONE [Suspect]
     Active Substance: HYDROCORTISONE
     Indication: Dermatitis atopic
     Dosage: 1 %, EVERY 1 DAYS
     Route: 061
     Dates: start: 20191107, end: 20191114
  2. HYDROCORTISONE [Suspect]
     Active Substance: HYDROCORTISONE
     Dosage: 1 %, AS NECESSARY
     Route: 061
     Dates: start: 20200114
  3. HYDROCORTISONE [Suspect]
     Active Substance: HYDROCORTISONE
     Dosage: 1 %, EVERY 1 DAYS
     Route: 061
     Dates: start: 20191117, end: 20191124
  4. HYDROCORTISONE [Suspect]
     Active Substance: HYDROCORTISONE
     Dosage: 1%, EVERY 1 DAYS
     Route: 061
     Dates: start: 20190902, end: 20190930
  5. HYDROCORTISONE [Suspect]
     Active Substance: HYDROCORTISONE
     Dosage: 1 %, EVERY 1 DAYS
     Route: 061
     Dates: start: 20191216, end: 20191223
  6. TRIAMCINOLONE ACETONIDE [Suspect]
     Active Substance: TRIAMCINOLONE ACETONIDE
     Indication: Dermatitis atopic
     Dosage: 0.1 %, EVERY 1 DAYS
     Route: 061
     Dates: start: 20190902, end: 20190923
  7. TRIAMCINOLONE ACETONIDE [Suspect]
     Active Substance: TRIAMCINOLONE ACETONIDE
     Dosage: 0.1%, 2/ DAYS
     Route: 061
     Dates: start: 20191125, end: 20191215
  8. TRIAMCINOLONE ACETONIDE [Suspect]
     Active Substance: TRIAMCINOLONE ACETONIDE
     Dosage: 0.1%, 3/WEEKS
     Route: 061
     Dates: start: 20220720, end: 20220811
  9. TRIAMCINOLONE ACETONIDE [Suspect]
     Active Substance: TRIAMCINOLONE ACETONIDE
     Dosage: 0.1%, 3/WEEKS
     Route: 061
     Dates: start: 20191223, end: 20200113
  10. TRIAMCINOLONE ACETONIDE [Suspect]
     Active Substance: TRIAMCINOLONE ACETONIDE
     Dosage: 0.1%, EVERY 1 DAYS
     Route: 061
     Dates: start: 20191223, end: 20200113
  11. TRIAMCINOLONE ACETONIDE [Suspect]
     Active Substance: TRIAMCINOLONE ACETONIDE
     Dosage: 0.1%, EVERY 1 DAYS
     Route: 061
     Dates: start: 20191016, end: 20191106
  12. TRIAMCINOLONE ACETONIDE [Suspect]
     Active Substance: TRIAMCINOLONE ACETONIDE
     Dosage: 0.1%, EVERY 1 DAYS
     Route: 061
     Dates: start: 20191001, end: 20191002
  13. TRIAMCINOLONE ACETONIDE [Suspect]
     Active Substance: TRIAMCINOLONE ACETONIDE
     Dosage: 0.1%, EVERY 2 DAYS
     Route: 061
     Dates: start: 20201208, end: 20201217
  14. TRIAMCINOLONE ACETONIDE [Suspect]
     Active Substance: TRIAMCINOLONE ACETONIDE
     Dosage: UNK UNK, QW
     Route: 061
     Dates: start: 20220402, end: 20220411
  15. TRIAMCINOLONE ACETONIDE [Suspect]
     Active Substance: TRIAMCINOLONE ACETONIDE
     Dosage: 0.1%, EVERY 1 DAYS
     Route: 061
     Dates: start: 20210127, end: 20210130
  16. TRIAMCINOLONE ACETONIDE [Suspect]
     Active Substance: TRIAMCINOLONE ACETONIDE
     Dosage: 0.1%, EVERY 1 DAYS
     Route: 061
     Dates: start: 20191125, end: 20191215
  17. UPADACITINIB [Suspect]
     Active Substance: UPADACITINIB
     Indication: Dermatitis atopic
     Dosage: UNK
     Route: 065
     Dates: start: 20191230, end: 20221122
  18. UPADACITINIB [Suspect]
     Active Substance: UPADACITINIB
     Dosage: UNK
     Route: 065
     Dates: start: 20190902, end: 20191229
  19. BETAMETHASONE DIPROPIONATE [Suspect]
     Active Substance: BETAMETHASONE DIPROPIONATE
     Indication: Dermatitis atopic
     Dosage: 0.05%, EVERY 1 DAYS
     Route: 061
     Dates: start: 20191016, end: 20191028
  20. BETAMETHASONE DIPROPIONATE [Suspect]
     Active Substance: BETAMETHASONE DIPROPIONATE
     Dosage: 0.064%, 2/WEEKS
     Route: 061
     Dates: start: 20211028, end: 20220401
  21. BETAMETHASONE DIPROPIONATE [Suspect]
     Active Substance: BETAMETHASONE DIPROPIONATE
     Dosage: 0.05%, 2/DAYS
     Route: 061
     Dates: start: 20191002, end: 20191008
  22. BETAMETHASONE DIPROPIONATE [Suspect]
     Active Substance: BETAMETHASONE DIPROPIONATE
     Dosage: 0.05%, EVERY 1 DAYS
     Route: 061
     Dates: start: 20191009, end: 20191015
  23. BETAMETHASONE DIPROPIONATE [Suspect]
     Active Substance: BETAMETHASONE DIPROPIONATE
     Dosage: 0.064%, EVERY 1 DAYS
     Route: 061
     Dates: start: 20210428, end: 20210509
  24. BETAMETHASONE DIPROPIONATE [Suspect]
     Active Substance: BETAMETHASONE DIPROPIONATE
     Dosage: 0.064 %, 3/WEEKS
     Route: 061
     Dates: start: 20220414, end: 20220824
  25. BETAMETHASONE DIPROPIONATE [Suspect]
     Active Substance: BETAMETHASONE DIPROPIONATE
     Dosage: 0.064%, EVERY 1 DAYS
     Route: 061
     Dates: start: 20210510, end: 20210803
  26. BETAMETHASONE DIPROPIONATE [Suspect]
     Active Substance: BETAMETHASONE DIPROPIONATE
     Dosage: 0.05%, 2/DAYS
     Route: 061
     Dates: start: 20191001, end: 20191002
  27. BETAMETHASONE DIPROPIONATE [Suspect]
     Active Substance: BETAMETHASONE DIPROPIONATE
     Dosage: 0.064%, EVERY 1 DAYS
     Route: 061
     Dates: start: 20210807, end: 20211027
  28. MOMETASONE FUROATE [Suspect]
     Active Substance: MOMETASONE FUROATE
     Indication: Dermatitis atopic
     Dosage: 0.1%, 2/DAYS
     Route: 061
     Dates: start: 20191002, end: 20191008
  29. MOMETASONE FUROATE [Suspect]
     Active Substance: MOMETASONE FUROATE
     Dosage: 0.1%, EVERY 1 DAYS
     Route: 061
     Dates: start: 20191009, end: 20191015
  30. CETAPHIL DAILY FACIAL MOISTURIZER WITH SUNCREEN SPF 50 [Concomitant]
     Active Substance: OCTINOXATE\OCTISALATE\OCTOCRYLENE\OXYBENZONE\TITANIUM DIOXIDE
     Indication: Prophylaxis
     Dosage: 1 APPLICATION, AS NECESSARY
     Route: 065
     Dates: start: 20191002
  31. LORMETAZEPAM [Concomitant]
     Active Substance: LORMETAZEPAM
     Indication: Depressed mood
     Dosage: 2 MILLIGRAM, EVERY 1 DAYS
     Route: 065
     Dates: start: 20220705
  32. PRAMIPEXOLE DIHYDROCHLORIDE [Concomitant]
     Active Substance: PRAMIPEXOLE DIHYDROCHLORIDE
     Indication: Restless legs syndrome
     Dosage: 0.18 MILLIGRAM, EVERY 1 DAYS
     Route: 065
     Dates: start: 20200928
  33. STEOVIT FORTE [Concomitant]
     Indication: Osteoporosis prophylaxis
     Dosage: 1G, EVERY 1 DAYS
     Route: 065
     Dates: start: 20190129
  34. STEOVIT FORTE [Concomitant]
     Indication: Osteonecrosis
  35. SPIRONOLACTONE [Concomitant]
     Active Substance: SPIRONOLACTONE
     Indication: Bundle branch block left
     Dosage: 25 MG, EVERY 1 DAYS
     Route: 065
     Dates: start: 20220119
  36. LEVOCETIRIZINE DIHYDROCHLORIDE [Concomitant]
     Active Substance: LEVOCETIRIZINE DIHYDROCHLORIDE
     Indication: Pruritus
     Dosage: 5 MG, EVERY 1 DAYS
     Route: 065
     Dates: start: 20190128
  37. LEVOCETIRIZINE DIHYDROCHLORIDE [Concomitant]
     Active Substance: LEVOCETIRIZINE DIHYDROCHLORIDE
     Indication: Rhinitis
  38. ESCITALOPRAM OXALATE [Concomitant]
     Active Substance: ESCITALOPRAM OXALATE
     Indication: Mood altered
     Dosage: 10 MILLIGRAM, EVERY 1 DAYS
     Route: 065
     Dates: start: 20220701
  39. ESCITALOPRAM OXALATE [Concomitant]
     Active Substance: ESCITALOPRAM OXALATE
     Indication: Suicidal ideation
  40. BISOPROLOL FUMARATE [Concomitant]
     Active Substance: BISOPROLOL FUMARATE
     Indication: Bundle branch block left
     Dosage: 5 MILLIGRAM, EVERY 1 DAYS
     Route: 065
     Dates: start: 20220119
  41. LOCOID CRELO [Concomitant]
     Indication: Dermatitis atopic
     Dosage: 1 APPLICATION, 2/WEEKS
     Route: 065
     Dates: start: 202101
  42. DIMETHINDENE [Concomitant]
     Active Substance: DIMETHINDENE
     Indication: Pruritus
     Dosage: 30 DROPS, AS NECESSARY
     Dates: start: 20191002
  43. UREUM [Concomitant]
     Indication: Dry skin prophylaxis
     Dosage: 5 % COLD CREAM, 2/DAYS
     Route: 065
     Dates: start: 20200907
  44. COVERAM [Concomitant]
     Active Substance: AMLODIPINE\PERINDOPRIL
     Indication: Hypertension
     Dosage: 10/10 MG, EVERY 1 DAYS
     Route: 065
     Dates: start: 20220119
  45. ALPRAZOLAM [Concomitant]
     Active Substance: ALPRAZOLAM
     Indication: Rhinitis
     Dosage: 25 MILLIGRAM, AS NECESSARY
     Route: 065
     Dates: start: 200609
  46. ALPRAZOLAM [Concomitant]
     Active Substance: ALPRAZOLAM
     Indication: Pruritus
  47. RUPATALL [Concomitant]
     Indication: Rhinitis
     Dosage: 10 MG, EVERY 1 DAYS
     Route: 065
     Dates: start: 20190128
  48. RUPATALL [Concomitant]
     Indication: Pruritus
  49. ACETAMINOPHEN [Concomitant]
     Active Substance: ACETAMINOPHEN
     Indication: Restless legs syndrome
     Dosage: 1 G, AS NECESSARY
     Route: 065
     Dates: start: 2013

REACTIONS (10)
  - Blindness [Unknown]
  - Suicidal ideation [Unknown]
  - Herpes ophthalmic [Not Recovered/Not Resolved]
  - Aortic dissection [Unknown]
  - SARS-CoV-2 test positive [Unknown]
  - Condition aggravated [Unknown]
  - Conjunctivitis [Unknown]
  - Conjunctivitis [Unknown]
  - Wrist fracture [Unknown]
  - Noninfective conjunctivitis [Unknown]

NARRATIVE: CASE EVENT DATE: 20191029
